FAERS Safety Report 4870976-7 (Version None)
Quarter: 2006Q1

REPORT INFORMATION
  Report Type: 
  Country: None (occurrence: None)
  Receive Date: 20060103
  Receipt Date: 20051215
  Transmission Date: 20060701
  Serious: Yes (Other)
  Sender: FDA-Public Use
  Company Number: US-BRISTOL-MYERS SQUIBB COMPANY-13219332

PATIENT
  Age: 58 Year
  Sex: Female
  Weight: 56 kg

DRUGS (11)
  1. CISPLATIN [Suspect]
     Indication: ADENOCARCINOMA PANCREAS
     Route: 042
     Dates: start: 20050711, end: 20050822
  2. FLUOROURACIL [Suspect]
     Indication: ADENOCARCINOMA PANCREAS
     Dosage: 150 MG/M2 SINCE 14-NOV-2005
     Route: 042
     Dates: start: 20050708, end: 20051024
  3. INTRON A [Suspect]
     Indication: ADENOCARCINOMA PANCREAS
     Route: 058
     Dates: start: 20050708, end: 20050812
  4. RADIATION THERAPY [Suspect]
     Indication: ADENOCARCINOMA PANCREAS
  5. CREON [Concomitant]
     Indication: PANCREATIC ENZYMES
     Route: 048
  6. ZOFRAN [Concomitant]
     Indication: NAUSEA
     Route: 048
  7. LEVOXYL [Concomitant]
     Route: 048
  8. ESTRADIOL INJ [Concomitant]
     Route: 048
  9. RITALIN [Concomitant]
     Route: 048
  10. IMODIUM [Concomitant]
     Indication: DIARRHOEA
     Route: 048
  11. PRILOSEC [Concomitant]
     Indication: NAUSEA
     Route: 048

REACTIONS (1)
  - ABDOMINAL PAIN [None]
